FAERS Safety Report 16898343 (Version 1)
Quarter: 2019Q4

REPORT INFORMATION
  Report Type: Spontaneous
  Country: US (occurrence: US)
  Receive Date: 20191009
  Receipt Date: 20191009
  Transmission Date: 20200122
  Serious: No
  Sender: FDA-Public Use
  Company Number: US-DRREDDYS-USA/USA/19/0114765

PATIENT
  Sex: Female
  Weight: 118.18 kg

DRUGS (2)
  1. HABITROL [Suspect]
     Active Substance: NICOTINE
     Route: 062
     Dates: start: 20190530, end: 20190602
  2. HABITROL [Suspect]
     Active Substance: NICOTINE
     Indication: TOBACCO USER
     Route: 062

REACTIONS (2)
  - Treatment noncompliance [Unknown]
  - Product adhesion issue [Unknown]
